FAERS Safety Report 18892860 (Version 1)
Quarter: 2021Q1

REPORT INFORMATION
  Report Type: Spontaneous
  Country: AU (occurrence: AU)
  Receive Date: 20210215
  Receipt Date: 20210215
  Transmission Date: 20210420
  Serious: Yes (Other)
  Sender: FDA-Public Use
  Company Number: AU-LUPIN PHARMACEUTICALS INC.-2021-01582

PATIENT
  Age: 30 Year
  Sex: Female

DRUGS (7)
  1. HYDROCORTISONE. [Suspect]
     Active Substance: HYDROCORTISONE
     Indication: TYPE III IMMUNE COMPLEX MEDIATED REACTION
     Dosage: UNK
     Route: 065
  2. INSULIN [Concomitant]
     Active Substance: INSULIN NOS
     Indication: TYPE 1 DIABETES MELLITUS
     Dosage: INITIALLY, CONTINUOUS SC INSULIN INFUSION (CSCII) CANNULA SITE WAS CHANGED 3?4 TIMES DAILY, AND THEN
     Route: 058
  3. INSULIN [Concomitant]
     Active Substance: INSULIN NOS
     Dosage: UNK
     Route: 030
  4. AZATHIOPRINE. [Suspect]
     Active Substance: AZATHIOPRINE
     Indication: TYPE III IMMUNE COMPLEX MEDIATED REACTION
     Dosage: UNK
     Route: 065
  5. PREDNISOLONE. [Suspect]
     Active Substance: PREDNISOLONE
     Indication: TYPE III IMMUNE COMPLEX MEDIATED REACTION
     Dosage: UNK
     Route: 048
  6. BETAMETHASONE. [Suspect]
     Active Substance: BETAMETHASONE
     Indication: TYPE III IMMUNE COMPLEX MEDIATED REACTION
     Dosage: UNK
     Route: 061
  7. NAFAMOSTAT [Suspect]
     Active Substance: NAFAMOSTAT
     Indication: TYPE III IMMUNE COMPLEX MEDIATED REACTION
     Dosage: UNK
     Route: 065

REACTIONS (1)
  - Drug ineffective [Unknown]
